FAERS Safety Report 17322726 (Version 1)
Quarter: 2020Q1

REPORT INFORMATION
  Report Type: Spontaneous
  Country: US (occurrence: US)
  Receive Date: 20200124
  Receipt Date: 20200124
  Transmission Date: 20200409
  Serious: No
  Sender: FDA-Public Use
  Company Number: None

PATIENT
  Sex: Female
  Weight: 70.2 kg

DRUGS (10)
  1. MIRALAX [Concomitant]
     Active Substance: POLYETHYLENE GLYCOL 3350
  2. MULTIVITAMIN [Concomitant]
     Active Substance: VITAMINS
  3. NEXIUM [Concomitant]
     Active Substance: ESOMEPRAZOLE MAGNESIUM
  4. METHOCARBAMOL 500MG [Concomitant]
  5. PROCHLORPERAZINE 10MG [Concomitant]
  6. CAPECITABINE. [Suspect]
     Active Substance: CAPECITABINE
     Indication: BREAST CANCER
     Route: 048
     Dates: start: 20191216, end: 20200124
  7. ONDANSETRON 8MG [Concomitant]
     Active Substance: ONDANSETRON
  8. LORAZEPAM 0.5MG [Concomitant]
     Active Substance: LORAZEPAM
  9. OXYCODONE 5MG [Concomitant]
     Active Substance: OXYCODONE
  10. PROAIR HFA 108 [Concomitant]

REACTIONS (1)
  - Palmar-plantar erythrodysaesthesia syndrome [None]
